FAERS Safety Report 9500913 (Version 1)
Quarter: 2013Q1

REPORT INFORMATION
  Report Type: Spontaneous
  Country: US (occurrence: None)
  Receive Date: 20130109
  Receipt Date: 20130109
  Transmission Date: 20140127
  Serious: Yes (Other)
  Sender: FDA-Public Use
  Company Number: FK201201616

PATIENT
  Sex: Female

DRUGS (1)
  1. PACLITAXEL [Suspect]
     Dosage: 80 MG/M2, 1, 8, 15 EVERY Q28, INTRAVENOUS
     Dates: start: 20120529, end: 20120605

REACTIONS (1)
  - Diarrhoea [None]
